FAERS Safety Report 18290986 (Version 4)
Quarter: 2021Q3

REPORT INFORMATION
  Report Type: Report from Study
  Country: CA (occurrence: CA)
  Receive Date: 20200921
  Receipt Date: 20210809
  Transmission Date: 20211014
  Serious: Yes (Other)
  Sender: FDA-Public Use
  Company Number: CA-JNJFOC-20200922019

PATIENT
  Age: 49 Year
  Sex: Male

DRUGS (2)
  1. STELARA [Suspect]
     Active Substance: USTEKINUMAB
     Indication: CROHN^S DISEASE
     Route: 042
     Dates: start: 20170509
  2. STELARA [Suspect]
     Active Substance: USTEKINUMAB
     Dosage: LAST INJECTION 22?JUL?2020 AND HIS NEXT DOSE IS DUE ON 16?SEP?2020
     Route: 058

REACTIONS (2)
  - Treatment noncompliance [Unknown]
  - Clostridium difficile infection [Unknown]

NARRATIVE: CASE EVENT DATE: 202104
